FAERS Safety Report 19508077 (Version 1)
Quarter: 2021Q3

REPORT INFORMATION
  Report Type: Spontaneous
  Country: US (occurrence: US)
  Receive Date: 20210708
  Receipt Date: 20210708
  Transmission Date: 20211014
  Serious: Yes (Other)
  Sender: FDA-Public Use
  Company Number: NVSC2021US153038

PATIENT
  Sex: Female

DRUGS (2)
  1. VOLTAREN [Suspect]
     Active Substance: DICLOFENAC SODIUM
     Indication: PRODUCT USED FOR UNKNOWN INDICATION
     Dosage: UNK
     Route: 065
  2. ADVIL [Suspect]
     Active Substance: IBUPROFEN
     Indication: PAIN IN EXTREMITY
     Dosage: UNK
     Route: 065

REACTIONS (8)
  - Paraesthesia [Unknown]
  - Hepatic function abnormal [Unknown]
  - Palpitations [Unknown]
  - Renal impairment [Unknown]
  - Insomnia [Unknown]
  - Tinnitus [Unknown]
  - Dysarthria [Unknown]
  - Circumstance or information capable of leading to medication error [Unknown]
